FAERS Safety Report 21864145 (Version 1)
Quarter: 2023Q1

REPORT INFORMATION
  Report Type: Spontaneous
  Country: JP (occurrence: JP)
  Receive Date: 20230116
  Receipt Date: 20230116
  Transmission Date: 20230418
  Serious: Yes (Other)
  Sender: FDA-Public Use
  Company Number: JP-SUN PHARMACEUTICAL INDUSTRIES LTD-2023R1-372887

PATIENT
  Age: 56 Year
  Sex: Male

DRUGS (3)
  1. CARBOPLATIN [Suspect]
     Active Substance: CARBOPLATIN
     Indication: Chemotherapy
     Dosage: UNK
     Route: 065
  2. PACLITAXEL [Suspect]
     Active Substance: PACLITAXEL
     Indication: Chemotherapy
     Dosage: 100 MILLIGRAM/SQ. METER
     Route: 065
  3. ATEZOLIZUMAB [Suspect]
     Active Substance: ATEZOLIZUMAB
     Indication: Chemotherapy
     Dosage: 1200 MG/BODY
     Route: 065

REACTIONS (7)
  - Disease progression [Unknown]
  - Therapy partial responder [Unknown]
  - Alpha 1 foetoprotein decreased [Unknown]
  - Neutropenia [Unknown]
  - Vomiting [Unknown]
  - Decreased appetite [Unknown]
  - Adrenal insufficiency [Unknown]
